FAERS Safety Report 10993966 (Version 2)
Quarter: 2015Q3

REPORT INFORMATION
  Report Type: Spontaneous
  Country: US (occurrence: US)
  Receive Date: 20150407
  Receipt Date: 20150916
  Transmission Date: 20151125
  Serious: Yes (Other)
  Sender: FDA-Public Use
  Company Number: US-SA-2015SA043389

PATIENT
  Age: 70 Year
  Sex: Female

DRUGS (3)
  1. MULTAQ [Suspect]
     Active Substance: DRONEDARONE
     Route: 065
     Dates: end: 201503
  2. MULTAQ [Suspect]
     Active Substance: DRONEDARONE
     Route: 065
  3. MULTAQ [Suspect]
     Active Substance: DRONEDARONE
     Route: 065

REACTIONS (5)
  - Depression [Unknown]
  - Vomiting [Recovered/Resolved]
  - Impaired gastric emptying [Recovered/Resolved]
  - Feeding disorder [Unknown]
  - Alopecia [Recovered/Resolved]
